FAERS Safety Report 21025767 (Version 1)
Quarter: 2022Q2

REPORT INFORMATION
  Report Type: Spontaneous
  Country: CN (occurrence: CN)
  Receive Date: 20220630
  Receipt Date: 20220630
  Transmission Date: 20220721
  Serious: Yes (Other)
  Sender: FDA-Public Use
  Company Number: CN-SUN PHARMACEUTICAL INDUSTRIES LTD-2022R1-342455

PATIENT
  Age: 35 Year
  Sex: Female

DRUGS (17)
  1. CISPLATIN [Suspect]
     Active Substance: CISPLATIN
     Indication: Chemotherapy
     Dosage: UNK (120 MG)
     Route: 065
  2. DEXAMETHASONE [Suspect]
     Active Substance: DEXAMETHASONE
     Dosage: UNK
     Route: 065
  3. DEXAMETHASONE [Suspect]
     Active Substance: DEXAMETHASONE
     Indication: Maternal therapy to enhance foetal lung maturity
  4. DEXAMETHASONE [Suspect]
     Active Substance: DEXAMETHASONE
  5. METOCLOPRAMIDE [Suspect]
     Active Substance: METOCLOPRAMIDE
     Dosage: UNK (10 MG)
     Route: 042
  6. METOCLOPRAMIDE [Suspect]
     Active Substance: METOCLOPRAMIDE
     Indication: Product used for unknown indication
  7. METOCLOPRAMIDE [Suspect]
     Active Substance: METOCLOPRAMIDE
  8. PACLITAXEL [Suspect]
     Active Substance: PACLITAXEL
     Indication: Chemotherapy
     Dosage: UNK (240 MG)
     Route: 065
  9. MAGNESIUM SULFATE [Suspect]
     Active Substance: MAGNESIUM SULFATE
     Dosage: UNK
     Route: 065
  10. MAGNESIUM SULFATE [Suspect]
     Active Substance: MAGNESIUM SULFATE
     Indication: Product used for unknown indication
  11. MAGNESIUM SULFATE [Suspect]
     Active Substance: MAGNESIUM SULFATE
  12. PENEQUININE [Suspect]
     Active Substance: PENEQUININE
     Dosage: UNK (0.5 MG)
     Route: 042
  13. PENEQUININE [Suspect]
     Active Substance: PENEQUININE
     Indication: Product used for unknown indication
  14. PENEQUININE [Suspect]
     Active Substance: PENEQUININE
  15. ROPIVACAINE [Suspect]
     Active Substance: ROPIVACAINE
     Dosage: UNK (2 ML OF 0.5%)
     Route: 065
  16. ROPIVACAINE [Suspect]
     Active Substance: ROPIVACAINE
     Indication: Product used for unknown indication
  17. ROPIVACAINE [Suspect]
     Active Substance: ROPIVACAINE

REACTIONS (3)
  - Exposure during pregnancy [Unknown]
  - Disease progression [Unknown]
  - Live birth [Unknown]
